FAERS Safety Report 19735350 (Version 1)
Quarter: 2021Q3

REPORT INFORMATION
  Report Type: Spontaneous
  Country: US (occurrence: US)
  Receive Date: 20210824
  Receipt Date: 20210824
  Transmission Date: 20211014
  Serious: No
  Sender: FDA-Public Use
  Company Number: US-OREXO US, INC.-ORE202008-000056

PATIENT
  Sex: Male

DRUGS (2)
  1. ZUBSOLV [Suspect]
     Active Substance: BUPRENORPHINE HYDROCHLORIDE\NALOXONE HYDROCHLORIDE
  2. ZUBSOLV [Suspect]
     Active Substance: BUPRENORPHINE HYDROCHLORIDE\NALOXONE HYDROCHLORIDE
     Indication: DRUG WITHDRAWAL SYNDROME
     Dosage: ONCE AT NIGHT
     Dates: start: 2018

REACTIONS (1)
  - Drug ineffective [Recovering/Resolving]
